FAERS Safety Report 19814561 (Version 1)
Quarter: 2021Q3

REPORT INFORMATION
  Report Type: Spontaneous
  Country: CN (occurrence: CN)
  Receive Date: 20210910
  Receipt Date: 20210910
  Transmission Date: 20211014
  Serious: Yes (Other)
  Sender: FDA-Public Use
  Company Number: CN-PFIZER INC-202101119505

PATIENT
  Age: 94 Year
  Sex: Male
  Weight: 55 kg

DRUGS (4)
  1. PIPERACILLIN/TAZOBACTAM [Suspect]
     Active Substance: PIPERACILLIN SODIUM\TAZOBACTAM SODIUM
     Indication: PNEUMONIA
     Dosage: 4.5 G, TWICE A DAY
     Route: 041
     Dates: start: 20210812, end: 20210824
  2. SODIUM CHLORIDE. [Concomitant]
     Active Substance: SODIUM CHLORIDE
     Dosage: 100 ML, TWICE A DAY
     Route: 041
     Dates: start: 20210812, end: 20210824
  3. SODIUM CHLORIDE. [Concomitant]
     Active Substance: SODIUM CHLORIDE
     Indication: VEHICLE SOLUTION USE
     Dosage: 50 ML, TWICE A DAY
     Route: 041
     Dates: start: 20210812, end: 20210824
  4. DOXOFYLLINE [Concomitant]
     Active Substance: DOXOFYLLINE
     Indication: MUSCLE SPASMS
     Dosage: 0.2 G, TWICE A DAY
     Route: 041
     Dates: start: 20210812, end: 20210824

REACTIONS (5)
  - Wheezing [Recovering/Resolving]
  - Dyspnoea [Recovering/Resolving]
  - Pyrexia [Recovering/Resolving]
  - Atrial fibrillation [Recovering/Resolving]
  - Drug hypersensitivity [Recovering/Resolving]

NARRATIVE: CASE EVENT DATE: 20210824
